FAERS Safety Report 5458751-6 (Version None)
Quarter: 2007Q3

REPORT INFORMATION
  Report Type: 
  Country: None (occurrence: None)
  Receive Date: 20070919
  Receipt Date: 20070424
  Transmission Date: 20080115
  Serious: No
  Sender: FDA-Public Use
  Company Number: US-ASTRAZENECA-2007UW08054

PATIENT
  Age: 49 Year
  Sex: Male

DRUGS (4)
  1. SEROQUEL [Suspect]
     Indication: BIPOLAR I DISORDER
     Dosage: TWO 200 MG TABS
     Route: 048
     Dates: start: 20070419
  2. INSULIN [Concomitant]
  3. LISINOPRIL [Concomitant]
     Route: 048
  4. HYDROCHLOROTHIAZIDE [Concomitant]

REACTIONS (2)
  - CHEST DISCOMFORT [None]
  - DIZZINESS [None]
